FAERS Safety Report 5600166-1 (Version None)
Quarter: 2008Q1

REPORT INFORMATION
  Report Type: 
  Country: None (occurrence: None)
  Receive Date: 20080117
  Receipt Date: 20080117
  Transmission Date: 20080703
  Serious: Yes (Other)
  Sender: FDA-Public Use
  Company Number: None

PATIENT
  Age: 51 Year
  Sex: Female
  Weight: 65.7716 kg

DRUGS (4)
  1. FLOVENT HFA [Suspect]
     Indication: ASTHMA
     Dosage: 2 PUFFS TWICE DAILY INHAL
     Route: 055
  2. PROVENTIL-HFA [Suspect]
     Indication: ASTHMA
     Dosage: 2 PUFFS EVERY 4 HR PRN INHAL
     Route: 055
  3. SINGULAIR [Concomitant]
  4. ZYRTEC [Concomitant]

REACTIONS (3)
  - COUGH [None]
  - DRUG INEFFECTIVE [None]
  - PHARMACEUTICAL PRODUCT COMPLAINT [None]
